FAERS Safety Report 7510049-8 (Version None)
Quarter: 2011Q2

REPORT INFORMATION
  Report Type: 
  Country: None (occurrence: None)
  Receive Date: 20110527
  Receipt Date: 20110520
  Transmission Date: 20111010
  Serious: Yes (Other)
  Sender: FDA-Public Use
  Company Number: US-AMGEN-USASP2011026389

PATIENT
  Sex: Female

DRUGS (1)
  1. PROLIA [Suspect]
     Indication: OSTEOPOROSIS POSTMENOPAUSAL
     Dosage: UNK
     Dates: start: 20110330

REACTIONS (8)
  - SWELLING FACE [None]
  - THYROID DISORDER [None]
  - EMOTIONAL DISTRESS [None]
  - PRURITUS [None]
  - FLUSHING [None]
  - FEELING HOT [None]
  - ALOPECIA [None]
  - ECZEMA [None]
